FAERS Safety Report 26201773 (Version 1)
Quarter: 2025Q4

REPORT INFORMATION
  Report Type: Spontaneous
  Country: US (occurrence: US)
  Receive Date: 20251226
  Receipt Date: 20251226
  Transmission Date: 20260117
  Serious: No
  Sender: UROGEN PHARMA
  Company Number: US-UROGEN PHARMA LTD.-2025-UGN-000219

PATIENT

DRUGS (4)
  1. JELMYTO [Suspect]
     Active Substance: MITOMYCIN
     Indication: Malignant neoplasm of renal pelvis
     Dosage: 68 MILLIGRAM, ONCE A WEEK (INSTILLATION)
     Route: 065
     Dates: start: 20251008, end: 20251008
  2. JELMYTO [Suspect]
     Active Substance: MITOMYCIN
     Dosage: 68 MILLIGRAM, ONCE A WEEK (INSTILLATION)
     Route: 065
     Dates: start: 20251015, end: 20251015
  3. JELMYTO [Suspect]
     Active Substance: MITOMYCIN
     Dosage: 68 MILLIGRAM, ONCE A WEEK (INSTILLATION)
     Route: 065
     Dates: start: 20251022, end: 20251022
  4. JELMYTO [Suspect]
     Active Substance: MITOMYCIN
     Dosage: 68 MILLIGRAM, ONCE A WEEK (INSTILLATION)
     Route: 065
     Dates: start: 20251029, end: 20251029

REACTIONS (1)
  - Urinary tract infection [Unknown]

NARRATIVE: CASE EVENT DATE: 20251101
